FAERS Safety Report 25757786 (Version 1)
Quarter: 2025Q3

REPORT INFORMATION
  Report Type: Spontaneous
  Country: US (occurrence: US)
  Receive Date: 20250903
  Receipt Date: 20250903
  Transmission Date: 20251020
  Serious: Yes (Other)
  Sender: MERCK SHARP & DOHME LLC
  Company Number: US-009507513-2325684

PATIENT
  Age: 64 Year
  Sex: Female
  Weight: 90.7 kg

DRUGS (18)
  1. PEMBROLIZUMAB [Suspect]
     Active Substance: PEMBROLIZUMAB
     Dates: start: 20241007, end: 20250127
  2. APIXABAN [Concomitant]
     Active Substance: APIXABAN
     Dates: start: 20210101, end: 20250406
  3. BENZONATATE [Concomitant]
     Active Substance: BENZONATATE
     Dates: start: 20210101
  4. dextroamphetamine-amphetamine ER [Concomitant]
     Dates: start: 20240101
  5. DULOXETINE [Concomitant]
     Active Substance: DULOXETINE
     Dates: start: 20170101
  6. FERROUS SULFATE [Concomitant]
     Active Substance: FERROUS SULFATE
     Dates: start: 20170101
  7. LAMOTRIGINE [Concomitant]
     Active Substance: LAMOTRIGINE
     Dates: start: 20240101
  8. METOPROLOL SUCCINATE [Concomitant]
     Active Substance: METOPROLOL SUCCINATE
     Dates: start: 20170101
  9. MIRTAZAPINE [Concomitant]
     Active Substance: MIRTAZAPINE
     Dates: start: 20170101
  10. VITAMINS [Concomitant]
     Active Substance: VITAMINS
     Dates: start: 20170101
  11. NITROGLYCERIN [Concomitant]
     Active Substance: NITROGLYCERIN
     Dates: start: 20230412
  12. OMEPRAZOLE [Concomitant]
     Active Substance: OMEPRAZOLE
     Dates: start: 20210101
  13. ROPINIROLE [Concomitant]
     Active Substance: ROPINIROLE
     Dates: start: 20210101
  14. ROSUVASTATIN [Concomitant]
     Active Substance: ROSUVASTATIN
     Dates: start: 20230213
  15. SOTALOL [Concomitant]
     Active Substance: SOTALOL
     Dates: start: 20170101
  16. TRAZODONE [Concomitant]
     Active Substance: TRAZODONE HYDROCHLORIDE
     Dates: start: 20170101
  17. TYLENOL [Concomitant]
     Active Substance: ACETAMINOPHEN
     Dates: start: 20220101
  18. ALBUTEROL [Concomitant]
     Active Substance: ALBUTEROL
     Dates: start: 20170101

REACTIONS (1)
  - Malignant neoplasm progression [Unknown]
